FAERS Safety Report 21898716 (Version 1)
Quarter: 2023Q1

REPORT INFORMATION
  Report Type: Spontaneous
  Country: US (occurrence: None)
  Receive Date: 20230122
  Receipt Date: 20230122
  Transmission Date: 20230417
  Serious: Yes (Disabling)
  Sender: FDA-Public Use
  Company Number: None

PATIENT
  Age: 52 Year
  Sex: Female
  Weight: 63 kg

DRUGS (1)
  1. CLOBETASOL PROPIONATE [Suspect]
     Active Substance: CLOBETASOL PROPIONATE
     Indication: Alopecia
     Dosage: OTHER QUANTITY : 1 APPLY TOPICALLY;?FREQUENCY : DAILY;?
     Route: 061
     Dates: start: 20221229, end: 20230104

REACTIONS (2)
  - Visual impairment [None]
  - Vision blurred [None]

NARRATIVE: CASE EVENT DATE: 20230104
